FAERS Safety Report 15733292 (Version 4)
Quarter: 2019Q1

REPORT INFORMATION
  Report Type: Report from Study
  Country: DE (occurrence: DE)
  Receive Date: 20181218
  Receipt Date: 20190308
  Transmission Date: 20190417
  Serious: Yes (Hospitalization, Other)
  Sender: FDA-Public Use
  Company Number: DE-ROCHE-2097781

PATIENT
  Age: 42 Year
  Sex: Female

DRUGS (8)
  1. OCREVUS [Suspect]
     Active Substance: OCRELIZUMAB
     Indication: RELAPSING-REMITTING MULTIPLE SCLEROSIS
     Dosage: 04/APR/2018
     Route: 042
     Dates: start: 20180320
  2. LORANO AKUT [Concomitant]
     Active Substance: LORATADINE
  3. CETIRIZIN [Concomitant]
     Active Substance: CETIRIZINE HYDROCHLORIDE
  4. NACL [Concomitant]
     Active Substance: SODIUM CHLORIDE
  5. OCREVUS [Suspect]
     Active Substance: OCRELIZUMAB
     Route: 042
     Dates: start: 20181005
  6. VITAMIN D3 [Concomitant]
     Active Substance: CHOLECALCIFEROL
     Route: 065
  7. PARACETAMOL [Concomitant]
     Active Substance: ACETAMINOPHEN
     Route: 065
  8. ESTRIOL [Concomitant]
     Active Substance: ESTRIOL
     Route: 065

REACTIONS (26)
  - Macular hole [Not Recovered/Not Resolved]
  - Intentional product use issue [Unknown]
  - Oropharyngeal pain [Recovered/Resolved]
  - Blood immunoglobulin G decreased [Not Recovered/Not Resolved]
  - Vitreous opacities [Not Recovered/Not Resolved]
  - Optic nerve disorder [Unknown]
  - Product preparation issue [Unknown]
  - Medication error [Unknown]
  - Nail bed inflammation [Recovered/Resolved]
  - Muscle spasms [Recovered/Resolved]
  - Inappropriate schedule of product administration [Unknown]
  - Balance disorder [Recovered/Resolved]
  - Hypoaesthesia [Not Recovered/Not Resolved]
  - Muscular weakness [Recovered/Resolved]
  - Influenza [Recovered/Resolved]
  - Multiple sclerosis [Unknown]
  - Macular degeneration [Not Recovered/Not Resolved]
  - Abdominal pain upper [Recovered/Resolved]
  - Nausea [Recovered/Resolved]
  - Fatigue [Recovered/Resolved]
  - Infusion related reaction [Recovered/Resolved]
  - Off label use [Unknown]
  - Rash erythematous [Recovered/Resolved]
  - Alopecia [Not Recovered/Not Resolved]
  - Sensory disturbance [Recovered/Resolved]
  - Tongue exfoliation [Recovered/Resolved]

NARRATIVE: CASE EVENT DATE: 20180320
